FAERS Safety Report 10673987 (Version 2)
Quarter: 2014Q4

REPORT INFORMATION
  Report Type: Spontaneous
  Country: KR (occurrence: None)
  Receive Date: 20141222
  Receipt Date: 20141230
  Transmission Date: 20150529
  Serious: Yes (Hospitalization)
  Sender: FDA-Public Use
  Company Number: FK201406343

PATIENT
  Age: 45 Year
  Sex: Female

DRUGS (2)
  1. FLUOROURACIL. [Suspect]
     Active Substance: FLUOROURACIL
     Indication: ADENOCARCINOMA OF COLON
  2. LEVAMISOLE [Suspect]
     Active Substance: LEVAMISOLE
     Indication: ADENOCARCINOMA OF COLON
     Dosage: FOR 3 DAYS EVERY TWO WEEKS
     Route: 048

REACTIONS (6)
  - Ataxia [None]
  - Diplopia [None]
  - IIIrd nerve paralysis [None]
  - Gaze palsy [None]
  - Progressive multifocal leukoencephalopathy [None]
  - Eyelid ptosis [None]
